FAERS Safety Report 7101272-5 (Version None)
Quarter: 2010Q4

REPORT INFORMATION
  Report Type: 
  Country: None (occurrence: None)
  Receive Date: 20101115
  Receipt Date: 20100309
  Transmission Date: 20110411
  Serious: No
  Sender: FDA-Public Use
  Company Number: US-PFIZER INC-2010024275

PATIENT
  Sex: Female
  Weight: 68 kg

DRUGS (5)
  1. CLEOCIN [Suspect]
     Indication: BACTERIAL INFECTION
     Route: 067
     Dates: start: 20100216, end: 20100216
  2. ESTRACE [Concomitant]
  3. LIPITOR [Concomitant]
  4. VAGIFEM [Concomitant]
     Route: 067
  5. ZOVIRAX [Concomitant]
     Dosage: FREQUENCY: AS NEEDED,

REACTIONS (2)
  - VULVOVAGINAL BURNING SENSATION [None]
  - VULVOVAGINAL DISCOMFORT [None]
